FAERS Safety Report 5864092-5 (Version None)
Quarter: 2008Q3

REPORT INFORMATION
  Report Type: 
  Country: None (occurrence: None)
  Receive Date: 20080829
  Receipt Date: 20080818
  Transmission Date: 20090109
  Serious: Yes (Other)
  Sender: FDA-Public Use
  Company Number: US-ROCHE-581431

PATIENT
  Age: 95 Year
  Sex: Female

DRUGS (2)
  1. BONIVA [Suspect]
     Indication: DRUG USE FOR UNKNOWN INDICATION
     Route: 065
     Dates: start: 20060101
  2. COUMADIN [Concomitant]

REACTIONS (3)
  - ALOPECIA [None]
  - ARTHROPATHY [None]
  - NEOPLASM MALIGNANT [None]
